FAERS Safety Report 6811799-9 (Version None)
Quarter: 2010Q2

REPORT INFORMATION
  Report Type: 
  Country: None (occurrence: None)
  Receive Date: 20100628
  Receipt Date: 20100614
  Transmission Date: 20101027
  Serious: No
  Sender: FDA-Public Use
  Company Number: 010125

PATIENT
  Age: 78 Year
  Sex: Male

DRUGS (1)
  1. PLETAL [Suspect]
     Indication: INTERMITTENT CLAUDICATION

REACTIONS (1)
  - RENAL FAILURE [None]
